FAERS Safety Report 9906277 (Version 3)
Quarter: 2014Q1

REPORT INFORMATION
  Report Type: Spontaneous
  Country: JP (occurrence: JP)
  Receive Date: 20140218
  Receipt Date: 20140331
  Transmission Date: 20141002
  Serious: No
  Sender: FDA-Public Use
  Company Number: JP-UCBSA-112789

PATIENT
  Age: 85 Year
  Sex: Male

DRUGS (5)
  1. XYZAL [Suspect]
     Indication: URTICARIA
     Route: 048
     Dates: start: 20140203, end: 20140204
  2. ADALAT-CR [Concomitant]
     Indication: HYPERTENSION
     Route: 048
     Dates: start: 20130209
  3. CRESTOR [Concomitant]
     Indication: DYSLIPIDAEMIA
     Route: 048
     Dates: start: 20090820
  4. DEXAMETHASONE [Concomitant]
     Route: 048
     Dates: start: 2003
  5. ZITHROMAC [Concomitant]
     Route: 048
     Dates: start: 20140124, end: 20140125

REACTIONS (5)
  - Somnolence [Recovered/Resolved]
  - Stupor [Recovered/Resolved]
  - Fall [Unknown]
  - Dry mouth [Recovered/Resolved]
  - Thirst [Recovered/Resolved]
